FAERS Safety Report 4505522-0 (Version None)
Quarter: 2004Q4

REPORT INFORMATION
  Report Type: 
  Country: None (occurrence: None)
  Receive Date: 20041018
  Receipt Date: 20040827
  Transmission Date: 20050328
  Serious: No
  Sender: FDA-Public Use
  Company Number: 208141

PATIENT
  Age: 25 Year
  Sex: Female
  Weight: 113.4 kg

DRUGS (2)
  1. XOLAIR [Suspect]
     Indication: ASTHMA
     Dosage: 225 MG, Q2W, SUBCUTANEOUS
     Route: 058
     Dates: start: 20040501
  2. STEROID (STEROID NOS) [Concomitant]

REACTIONS (1)
  - JOINT SWELLING [None]
